FAERS Safety Report 9029705 (Version 1)
Quarter: 2013Q1

REPORT INFORMATION
  Report Type: Spontaneous
  Country: US (occurrence: US)
  Receive Date: 20130124
  Receipt Date: 20130124
  Transmission Date: 20140127
  Serious: Yes (Hospitalization)
  Sender: FDA-Public Use
  Company Number: US-B.I. PHARMACEUTICALS,INC./RIDGEFIELD-2013-BI-01717GD

PATIENT
  Age: 81 Year
  Sex: Female

DRUGS (1)
  1. PRADAXA [Suspect]

REACTIONS (5)
  - Fall [Unknown]
  - Head injury [Unknown]
  - Tenderness [Unknown]
  - Swelling [Unknown]
  - Ecchymosis [Unknown]
